FAERS Safety Report 6105167-5 (Version None)
Quarter: 2009Q1

REPORT INFORMATION
  Report Type: 
  Country: None (occurrence: None)
  Receive Date: 20090306
  Receipt Date: 20090303
  Transmission Date: 20090719
  Serious: Yes (Hospitalization)
  Sender: FDA-Public Use
  Company Number: US-BIOGENIDEC-2009BI001955

PATIENT
  Sex: Female

DRUGS (3)
  1. AVONEX [Suspect]
     Indication: MULTIPLE SCLEROSIS
     Route: 030
     Dates: start: 20080911
  2. NEXIUM [Concomitant]
  3. BENICAR [Concomitant]

REACTIONS (3)
  - COLON CANCER STAGE II [None]
  - INCISION SITE PAIN [None]
  - OVARIAN CYST [None]
